FAERS Safety Report 16196595 (Version 1)
Quarter: 2019Q2

REPORT INFORMATION
  Report Type: Spontaneous
  Country: US (occurrence: US)
  Receive Date: 20190412
  Receipt Date: 20190412
  Transmission Date: 20190711
  Serious: Yes (Disabling, Other)
  Sender: FDA-Public Use
  Company Number: None

PATIENT
  Age: 67 Year
  Sex: Female
  Weight: 96.3 kg

DRUGS (18)
  1. FLEXERIL [Concomitant]
     Active Substance: CYCLOBENZAPRINE HYDROCHLORIDE
  2. GINGER ROOT [Concomitant]
     Active Substance: GINGER
  3. BUTCHER^S BROOM [Concomitant]
     Active Substance: RUSCUS ACULEATUS ROOT
  4. VOLTAREN [Concomitant]
     Active Substance: DICLOFENAC SODIUM
  5. MAXALT [Concomitant]
     Active Substance: RIZATRIPTAN BENZOATE
  6. MORPHINE SULFATE ER 10 MG CAP DISP FOR KADIAN [Suspect]
     Active Substance: MORPHINE SULFATE
     Indication: BURSITIS
     Dosage: ?          QUANTITY:30 CAPSULE(S);?
     Route: 048
  7. OXYCODONE [Concomitant]
     Active Substance: OXYCODONE
  8. MORPHINE SULFATE ER 10 MG CAP DISP FOR KADIAN [Suspect]
     Active Substance: MORPHINE SULFATE
     Indication: FIBROMYALGIA
     Dosage: ?          QUANTITY:30 CAPSULE(S);?
     Route: 048
  9. MORPHINE SULFATE ER 10 MG CAP DISP FOR KADIAN [Suspect]
     Active Substance: MORPHINE SULFATE
     Indication: NERVE INJURY
     Dosage: ?          QUANTITY:30 CAPSULE(S);?
     Route: 048
  10. MORPHINE SULFATE ER 10 MG CAP DISP FOR KADIAN [Suspect]
     Active Substance: MORPHINE SULFATE
     Indication: BACK PAIN
     Dosage: ?          QUANTITY:30 CAPSULE(S);?
     Route: 048
  11. GABAPENTIN. [Concomitant]
     Active Substance: GABAPENTIN
  12. BUTAL/ACET/CAFF [Concomitant]
  13. SIMVASTATIN. [Concomitant]
     Active Substance: SIMVASTATIN
  14. LISINOPRIL. [Concomitant]
     Active Substance: LISINOPRIL
  15. MAGNESIUM [Concomitant]
     Active Substance: MAGNESIUM
  16. MORPHINE SULFATE ER 10 MG CAP DISP FOR KADIAN [Suspect]
     Active Substance: MORPHINE SULFATE
     Indication: OSTEOARTHRITIS
     Dosage: ?          QUANTITY:30 CAPSULE(S);?
     Route: 048
  17. KADIAN [Concomitant]
     Active Substance: MORPHINE SULFATE
  18. COMPAZINE [Concomitant]
     Active Substance: PROCHLORPERAZINE MALEATE

REACTIONS (2)
  - Condition aggravated [None]
  - Therapy change [None]

NARRATIVE: CASE EVENT DATE: 20190320
